FAERS Safety Report 9624786 (Version 1)
Quarter: 2013Q4

REPORT INFORMATION
  Report Type: Spontaneous
  Country: US (occurrence: US)
  Receive Date: 20131015
  Receipt Date: 20131015
  Transmission Date: 20140711
  Serious: No
  Sender: FDA-Public Use
  Company Number: US-009507513-1310USA001850

PATIENT
  Age: 51 Year
  Sex: Male

DRUGS (4)
  1. PEGINTRON [Suspect]
     Indication: HEPATITIS C
     Dosage: REDIPEN
     Dates: start: 20130718, end: 20130801
  2. PEGINTRON [Suspect]
     Dosage: REDIPEN
     Dates: start: 20130823
  3. REBETOL [Suspect]
     Indication: HEPATITIS C
     Dosage: UNK
     Route: 048
     Dates: start: 20130718, end: 20130801
  4. REBETOL [Suspect]
     Dosage: UNK
     Dates: start: 20130823

REACTIONS (1)
  - White blood cell count decreased [Unknown]
